FAERS Safety Report 4764144-7 (Version None)
Quarter: 2005Q3

REPORT INFORMATION
  Report Type: 
  Country: None (occurrence: None)
  Receive Date: 20050906
  Receipt Date: 20050624
  Transmission Date: 20060218
  Serious: No
  Sender: FDA-Public Use
  Company Number: 2005-BP-10784BP

PATIENT
  Age: 80 Year
  Sex: Female

DRUGS (8)
  1. SPIRIVA [Suspect]
     Indication: PNEUMONIA
     Dosage: 2 INHALATIONS (18 MCG, 1 IN 1 D), IH
     Route: 055
     Dates: start: 20050301
  2. FUROSEMIDE [Concomitant]
  3. LISINOPRIL [Concomitant]
  4. ATENOLOL [Concomitant]
  5. ACETYLSALICYLIC ACID SRT [Concomitant]
  6. LIPITOR [Concomitant]
  7. FISH OIL [Concomitant]
  8. VITAMINS (VITAMINS) [Concomitant]

REACTIONS (6)
  - DRY MOUTH [None]
  - SWELLING FACE [None]
  - SWOLLEN TONGUE [None]
  - TONGUE DISORDER [None]
  - TONGUE HAEMORRHAGE [None]
  - VISION BLURRED [None]
